FAERS Safety Report 14711612 (Version 2)
Quarter: 2018Q2

REPORT INFORMATION
  Report Type: Spontaneous
  Country: US (occurrence: US)
  Receive Date: 20180403
  Receipt Date: 20180424
  Transmission Date: 20180711
  Serious: No
  Sender: FDA-Public Use
  Company Number: US-TEVA-2018-US-875977

PATIENT
  Sex: Female
  Weight: 45 kg

DRUGS (1)
  1. TAMOXIFEN [Suspect]
     Active Substance: TAMOXIFEN
     Indication: BREAST CANCER STAGE I
     Dates: start: 201803

REACTIONS (2)
  - Wrong technique in product usage process [Unknown]
  - Fatigue [Unknown]

NARRATIVE: CASE EVENT DATE: 201803
